FAERS Safety Report 8477529-2 (Version None)
Quarter: 2012Q2

REPORT INFORMATION
  Report Type: 
  Country: None (occurrence: None)
  Receive Date: 20120629
  Receipt Date: 20120620
  Transmission Date: 20120825
  Serious: Yes (Death, Other)
  Sender: FDA-Public Use
  Company Number: ES-MPIJNJ-2012-04024

PATIENT

DRUGS (4)
  1. PREDNISONE [Suspect]
     Indication: PROPHYLAXIS
     Dosage: 0.5 MG/KG, QD
  2. ENALAPRIL MALEATE [Concomitant]
     Indication: PRODUCT USED FOR UNKNOWN INDICATION
  3. PREDNISONE [Concomitant]
     Indication: SKIN LESION
     Dosage: 40 MG, QD
  4. VELCADE [Suspect]
     Indication: MULTIPLE MYELOMA

REACTIONS (3)
  - MULTIPLE MYELOMA [None]
  - DEATH [None]
  - ACUTE FEBRILE NEUTROPHILIC DERMATOSIS [None]
